FAERS Safety Report 19418693 (Version 2)
Quarter: 2021Q3

REPORT INFORMATION
  Report Type: Spontaneous
  Country: IT (occurrence: IT)
  Receive Date: 20210615
  Receipt Date: 20210702
  Transmission Date: 20211014
  Serious: Yes (Other)
  Sender: FDA-Public Use
  Company Number: NVSC2021IT131783

PATIENT
  Age: 56 Year
  Sex: Female

DRUGS (11)
  1. ANASTRAZOLE SANDOZ [Suspect]
     Active Substance: ANASTROZOLE
     Indication: INTRADUCTAL PROLIFERATIVE BREAST LESION
     Dosage: 1 MG, QD
     Route: 065
     Dates: start: 201110
  2. FLUOROURACIL. [Concomitant]
     Active Substance: FLUOROURACIL
     Indication: INTRADUCTAL PROLIFERATIVE BREAST LESION
     Dosage: EVERY 21 DAYS FOR 3 CYCLES
     Route: 065
  3. LETROZOLE. [Concomitant]
     Active Substance: LETROZOLE
     Indication: INTRADUCTAL PROLIFERATIVE BREAST LESION
     Dosage: 2.5 MG
     Route: 065
  4. DOCETAXEL SANDOZ [Suspect]
     Active Substance: DOCETAXEL
     Indication: INTRADUCTAL PROLIFERATIVE BREAST LESION
     Dosage: 100 MG/MQ, EVERY 21 DAYS FOR 3 CYCLES
     Route: 065
  5. TRASTUZUMAB. [Suspect]
     Active Substance: TRASTUZUMAB
     Indication: INTRADUCTAL PROLIFERATIVE BREAST LESION
     Dosage: EVERY 21 DAYS FOR 18 ADMINISTRATIONS
     Route: 065
     Dates: start: 201704
  6. DOCETAXEL SANDOZ [Suspect]
     Active Substance: DOCETAXEL
     Dosage: 75 MG/MQ, EVERY 21 DAYS FOR 3 CYCLES
     Route: 065
     Dates: start: 201704
  7. EPIRUBICIN [Suspect]
     Active Substance: EPIRUBICIN
     Indication: INTRADUCTAL PROLIFERATIVE BREAST LESION
     Dosage: PROTOCOL FEC 90, EVERY 21 DAYS
     Route: 065
  8. PERTUZUMAB. [Suspect]
     Active Substance: PERTUZUMAB
     Indication: INTRADUCTAL PROLIFERATIVE BREAST LESION
     Dosage: UNK, THREE TIMES A WEEK
     Route: 065
     Dates: start: 201704
  9. CAPECITABINE. [Concomitant]
     Active Substance: CAPECITABINE
     Indication: INTRADUCTAL PROLIFERATIVE BREAST LESION
     Dosage: 1000 MG, QD (REDUCED DOSAGES IN CONSIDERATION OF THE HEMATOLOGICAL TOXICITY PRESENTED ABOVE)
     Route: 065
  10. CYCLOPHOSPHAMIDE. [Concomitant]
     Active Substance: CYCLOPHOSPHAMIDE
     Indication: INTRADUCTAL PROLIFERATIVE BREAST LESION
     Dosage: EVERY 21 DAYS FOR 3 CYCLES
     Route: 065
  11. LAPATINIB [Concomitant]
     Active Substance: LAPATINIB
     Indication: INTRADUCTAL PROLIFERATIVE BREAST LESION
     Dosage: 750 MG, QD
     Route: 065

REACTIONS (7)
  - Intraductal proliferative breast lesion [Unknown]
  - Metastases to lung [Unknown]
  - Soft tissue disorder [Unknown]
  - Neoplasm malignant [Unknown]
  - Malignant neoplasm progression [Unknown]
  - Thrombocytopenia [Unknown]
  - Invasive ductal breast carcinoma [Unknown]

NARRATIVE: CASE EVENT DATE: 201702
